FAERS Safety Report 22592787 (Version 3)
Quarter: 2023Q4

REPORT INFORMATION
  Report Type: Report from Study
  Country: UY (occurrence: UY)
  Receive Date: 20230613
  Receipt Date: 20231207
  Transmission Date: 20240110
  Serious: Yes (Other)
  Sender: FDA-Public Use
  Company Number: UY-ABBVIE-5287444

PATIENT
  Sex: Female

DRUGS (2)
  1. RINVOQ [Suspect]
     Active Substance: UPADACITINIB
     Indication: Rheumatoid arthritis
     Dosage: FORM STRENGTH:15 MILLIGRAM ?LAST ADMIN DATE 2023
     Route: 048
     Dates: start: 20230208
  2. RINVOQ [Suspect]
     Active Substance: UPADACITINIB
     Indication: Rheumatoid arthritis
     Dosage: FORM STRENGTH: 15 MILLIGRAM
     Route: 048
     Dates: start: 20230706, end: 20230908

REACTIONS (11)
  - Blindness unilateral [Unknown]
  - Balance disorder [Not Recovered/Not Resolved]
  - Walking aid user [Not Recovered/Not Resolved]
  - Synovial cyst [Recovering/Resolving]
  - Gait inability [Unknown]
  - Swelling [Unknown]
  - Rheumatoid arthritis [Recovering/Resolving]
  - Head discomfort [Unknown]
  - Eye haemorrhage [Unknown]
  - Intraocular pressure increased [Unknown]
  - Ocular procedural complication [Unknown]

NARRATIVE: CASE EVENT DATE: 20230101
